FAERS Safety Report 11948215 (Version 2)
Quarter: 2016Q1

REPORT INFORMATION
  Report Type: Report from Study
  Country: MX (occurrence: MX)
  Receive Date: 20160125
  Receipt Date: 20160210
  Transmission Date: 20160526
  Serious: Yes (Other)
  Sender: FDA-Public Use
  Company Number: PHHY2016MX007722

PATIENT
  Age: 44 Year
  Sex: Female

DRUGS (3)
  1. TEGRETOL [Suspect]
     Active Substance: CARBAMAZEPINE
     Indication: EPILEPSY
     Dosage: 3 DF (400 MG), QD (STARTED 20 YEARS AGO)
     Route: 048
     Dates: end: 201401
  2. TEGRETOL [Suspect]
     Active Substance: CARBAMAZEPINE
     Dosage: 3 DF (400 MG), QD
     Route: 048
     Dates: start: 20140603
  3. TRILEPTAL [Suspect]
     Active Substance: OXCARBAZEPINE
     Indication: EPILEPSY
     Dosage: 2 DF (600 MG), QD
     Route: 065
     Dates: start: 20140114, end: 20140603

REACTIONS (6)
  - Somnolence [Recovered/Resolved]
  - Diplopia [Recovered/Resolved]
  - Epilepsy [Recovered/Resolved]
  - Dizziness [Recovered/Resolved]
  - Malaise [Recovered/Resolved]
  - Hypotension [Recovered/Resolved]

NARRATIVE: CASE EVENT DATE: 201401
